FAERS Safety Report 23939427 (Version 1)
Quarter: 2024Q2

REPORT INFORMATION
  Report Type: Other
  Country: DE (occurrence: DE)
  Receive Date: 20240605
  Receipt Date: 20240605
  Transmission Date: 20240717
  Serious: Yes (Other)
  Sender: FDA-Public Use
  Company Number: DE-ROCHE-2222484

PATIENT
  Age: 52 Year
  Sex: Male

DRUGS (7)
  1. OCREVUS [Suspect]
     Active Substance: OCRELIZUMAB
     Indication: Relapsing-remitting multiple sclerosis
     Route: 042
     Dates: start: 20181106
  2. OCREVUS [Suspect]
     Active Substance: OCRELIZUMAB
     Dosage: SUBSEQUENT DOSES OF OCRELIZUMAB: 04/DEC/2019, 04/FEB/2020, JUN/2020, 15/DEC/2020, 10/AUG/2022
     Route: 042
     Dates: start: 20181121
  3. COMIRNATY (TOZINAMERAN) [Suspect]
     Active Substance: TOZINAMERAN
     Indication: COVID-19 prophylaxis
     Dosage: FIRST DOSE
     Route: 065
     Dates: start: 202104, end: 202104
  4. COMIRNATY (TOZINAMERAN) [Suspect]
     Active Substance: TOZINAMERAN
     Dosage: SECOND DOSE
     Route: 065
     Dates: start: 202105, end: 202105
  5. GABAPENTIN [Concomitant]
     Active Substance: GABAPENTIN
  6. LYRICA [Concomitant]
     Active Substance: PREGABALIN
  7. DALFAMPRIDINE [Concomitant]
     Active Substance: DALFAMPRIDINE

REACTIONS (13)
  - Multiple sclerosis [Recovered/Resolved]
  - Headache [Recovered/Resolved]
  - Pain in extremity [Recovered/Resolved]
  - Listless [Recovered/Resolved]
  - Infusion related reaction [Recovered/Resolved]
  - Mobility decreased [Recovered/Resolved]
  - Fatigue [Recovered/Resolved]
  - Gait disturbance [Not Recovered/Not Resolved]
  - Apathy [Recovered/Resolved]
  - Asthenia [Recovered/Resolved]
  - SARS-CoV-2 antibody test negative [Not Recovered/Not Resolved]
  - Somnolence [Recovered/Resolved]
  - Erysipelas [Unknown]

NARRATIVE: CASE EVENT DATE: 20181106
